FAERS Safety Report 7714029 (Version 4)
Quarter: 2013Q3

REPORT INFORMATION
  Report Type: Report from Study
  Country: JP (occurrence: JP)
  Receive Date: 20101216
  Receipt Date: 20130705
  Transmission Date: 20140515
  Serious: Yes (Hospitalization)
  Sender: FDA-Public Use
  Company Number: JP-BRISTOL-MYERS SQUIBB COMPANY-15429509

PATIENT
  Age: 55 Year
  Sex: Female
  Weight: 39.5 kg

DRUGS (19)
  1. SPRYCEL [Suspect]
     Indication: ACUTE LYMPHOCYTIC LEUKAEMIA
     Dosage: 140MG/DAY:18NOV-04OCT?50MG(BID):05OCT-22OCT?50MG/DAY:04NOV-12NOV2010
     Route: 048
     Dates: start: 20091118, end: 20101112
  2. LENDORMIN [Concomitant]
     Dosage: LENDORMIN D TABS
     Route: 048
  3. MAGLAX [Concomitant]
     Dosage: TABS
     Route: 048
  4. DEPAS [Concomitant]
     Dosage: TABS
     Route: 048
     Dates: end: 20101011
  5. BAKTAR [Concomitant]
     Indication: INFECTION
     Dosage: 1DF:1 TABS
     Route: 048
  6. METHYCOBAL [Concomitant]
     Dosage: TABS
     Route: 048
  7. PREDONINE [Concomitant]
     Dosage: TABS
     Route: 048
  8. ADVAIR DISKUS [Concomitant]
     Dosage: 1DF:1 PIECE/DAY
     Route: 055
     Dates: end: 20101011
  9. SPIRIVA [Concomitant]
     Dosage: 1DF:1 CAP
     Route: 055
  10. TAKEPRON [Concomitant]
     Indication: PROPHYLAXIS
     Dosage: TABS; TAKEPRON OD
     Route: 048
  11. PRIMPERAN [Concomitant]
     Indication: PROPHYLAXIS
     Dosage: TABS
     Route: 048
  12. JUVELA [Concomitant]
     Dosage: TABS
     Route: 048
  13. MUCOSOLVAN [Concomitant]
     Dosage: TABS
     Route: 048
     Dates: end: 20100608
  14. WYPAX [Concomitant]
     Dosage: TABS
     Route: 048
     Dates: start: 20101005
  15. MEROPEN [Concomitant]
     Route: 042
     Dates: start: 20101012, end: 20101022
  16. RIVOTRIL [Concomitant]
     Dosage: TABS
     Route: 048
     Dates: end: 20100412
  17. GASTER D [Concomitant]
     Indication: PROPHYLAXIS
     Route: 048
     Dates: end: 20100524
  18. CRAVIT [Concomitant]
     Indication: INFECTION
     Dosage: TABS
     Route: 048
     Dates: start: 20100302
  19. JUZEN-TAIHO-TO [Concomitant]
     Route: 048
     Dates: end: 20100301

REACTIONS (3)
  - Hyponatraemia [Recovered/Resolved]
  - Pleural effusion [Not Recovered/Not Resolved]
  - Inappropriate antidiuretic hormone secretion [Recovered/Resolved]
